FAERS Safety Report 6109905-7 (Version None)
Quarter: 2009Q1

REPORT INFORMATION
  Report Type: 
  Country: None (occurrence: None)
  Receive Date: 20090310
  Receipt Date: 20080813
  Transmission Date: 20090719
  Serious: No
  Sender: FDA-Public Use
  Company Number: A0742385A

PATIENT
  Age: 63 Year
  Sex: Female

DRUGS (1)
  1. NICORETTE [Suspect]

REACTIONS (4)
  - GLOSSODYNIA [None]
  - THERMAL BURN [None]
  - TONGUE DISORDER [None]
  - TONGUE ULCERATION [None]
